FAERS Safety Report 7128013-X (Version None)
Quarter: 2010Q4

REPORT INFORMATION
  Report Type: 
  Country: None (occurrence: None)
  Receive Date: 20101130
  Receipt Date: 20101118
  Transmission Date: 20110411
  Serious: Yes (Other)
  Sender: FDA-Public Use
  Company Number: PHEH2007US03361

PATIENT
  Sex: Female
  Weight: 63.492 kg

DRUGS (10)
  1. ZOMETA [Suspect]
  2. EFFEXOR XR [Concomitant]
     Dosage: UNK
     Dates: start: 20070925
  3. EFFEXOR [Concomitant]
     Dosage: UNK
     Dates: end: 20070924
  4. FEMARA [Concomitant]
  5. LUPRON [Concomitant]
  6. WELLBUTRIN [Concomitant]
  7. VICODIN [Concomitant]
  8. LEXAPRO [Concomitant]
  9. VITAMIN D [Concomitant]
  10. CALCIUM [Concomitant]

REACTIONS (41)
  - ACROCHORDON EXCISION [None]
  - ALOPECIA [None]
  - ANXIETY [None]
  - ASPIRATION PLEURAL CAVITY [None]
  - ATELECTASIS [None]
  - BACK PAIN [None]
  - BONE LESION [None]
  - BONE PAIN [None]
  - BREAST CANCER METASTATIC [None]
  - BREAST LUMP REMOVAL [None]
  - CATHETER PLACEMENT [None]
  - DECREASED INTEREST [None]
  - DENTAL CARIES [None]
  - DEPRESSION [None]
  - EPISTAXIS [None]
  - GENERAL PHYSICAL HEALTH DETERIORATION [None]
  - HAEMANGIOMA [None]
  - HEADACHE [None]
  - HEPATIC LESION [None]
  - INTERVERTEBRAL DISC PROTRUSION [None]
  - LOCAL SWELLING [None]
  - LUNG INFILTRATION [None]
  - LYMPH NODE CANCER METASTATIC [None]
  - LYMPHADENOPATHY [None]
  - MALIGNANT NEOPLASM PROGRESSION [None]
  - METASTASES TO BONE [None]
  - NOCTURIA [None]
  - OSTEONECROSIS OF JAW [None]
  - OVARIAN CYST [None]
  - PAIN [None]
  - PAIN IN EXTREMITY [None]
  - PARANEOPLASTIC SYNDROME [None]
  - PLEURAL EFFUSION [None]
  - POLLAKIURIA [None]
  - SENSITIVITY OF TEETH [None]
  - SPINAL CORPECTOMY [None]
  - SPINAL FUSION SURGERY [None]
  - SPINAL OSTEOARTHRITIS [None]
  - TOOTH DISORDER [None]
  - TOOTHACHE [None]
  - TUMOUR MARKER INCREASED [None]
